FAERS Safety Report 7183100-5 (Version None)
Quarter: 2010Q4

REPORT INFORMATION
  Report Type: 
  Country: None (occurrence: None)
  Receive Date: 20101222
  Receipt Date: 20101213
  Transmission Date: 20110411
  Serious: Yes (Other)
  Sender: FDA-Public Use
  Company Number: CN-JNJFOC-20101205404

PATIENT
  Age: 4 Year
  Sex: Male
  Weight: 19 kg

DRUGS (2)
  1. TOPAMAX [Suspect]
     Indication: EPILEPSY
     Dosage: 25MG/QN OR BID/PO
     Route: 048
  2. TOPAMAX [Suspect]
     Dosage: 25 MG ONCE EVERY NIGHT
     Route: 048

REACTIONS (3)
  - AGITATION [None]
  - CRYING [None]
  - DYSLOGIA [None]
